FAERS Safety Report 6784846-0 (Version None)
Quarter: 2010Q2

REPORT INFORMATION
  Report Type: 
  Country: None (occurrence: None)
  Receive Date: 20100622
  Receipt Date: 20080829
  Transmission Date: 20101027
  Serious: Yes (Death)
  Sender: FDA-Public Use
  Company Number: AT-GENZYME-CLOF-1000275

PATIENT
  Sex: Female

DRUGS (9)
  1. CLOFARABINE [Suspect]
     Indication: ACUTE LEUKAEMIA
     Dosage: 40 MG/M2, QDX5
     Route: 042
     Dates: start: 20080820, end: 20080824
  2. MYLOTARG [Suspect]
     Indication: ACUTE LEUKAEMIA
     Dosage: 24 MG, UNK
     Dates: start: 20080709, end: 20080716
  3. SPORANOX [Concomitant]
     Indication: DRUG USE FOR UNKNOWN INDICATION
     Dosage: 200 MG/DAY, BID
     Dates: start: 20080819, end: 20080825
  4. NORVASC [Concomitant]
     Indication: DRUG USE FOR UNKNOWN INDICATION
     Dosage: 5 MG, QD
     Dates: start: 20080819, end: 20080824
  5. ACEMIN [Concomitant]
     Indication: DRUG USE FOR UNKNOWN INDICATION
     Dosage: 2.5 MG, QD
     Dates: start: 20080819, end: 20080824
  6. TRITICO [Concomitant]
     Indication: DRUG USE FOR UNKNOWN INDICATION
     Dosage: 50 MG, QD
     Dates: start: 20080819, end: 20080825
  7. ZOFRAN [Concomitant]
     Indication: DRUG USE FOR UNKNOWN INDICATION
     Dosage: 4 MG, QD
     Dates: start: 20080819, end: 20080824
  8. ISOTONIC SOLUTIONS [Concomitant]
     Indication: DRUG USE FOR UNKNOWN INDICATION
     Dosage: 500 ML, QD
     Dates: start: 20080819, end: 20080825
  9. CERAZETTE [Concomitant]
     Indication: DRUG USE FOR UNKNOWN INDICATION
     Dosage: 1 TABLET, UNK
     Dates: start: 20080819, end: 20080826

REACTIONS (2)
  - CAPILLARY LEAK SYNDROME [None]
  - MULTI-ORGAN FAILURE [None]
